FAERS Safety Report 18099486 (Version 1)
Quarter: 2020Q3

REPORT INFORMATION
  Report Type: Spontaneous
  Country: HU (occurrence: HU)
  Receive Date: 20200731
  Receipt Date: 20200731
  Transmission Date: 20201103
  Serious: Yes (Other)
  Sender: FDA-Public Use
  Company Number: HU-MYLANLABS-2020M1067582

PATIENT
  Sex: Female

DRUGS (6)
  1. KISQALI [Suspect]
     Active Substance: RIBOCICLIB
     Indication: BREAST CANCER METASTATIC
     Dosage: 600 MG (FOR 21 DAYS, THEN 7 DAYS PAUSE)
     Route: 065
     Dates: start: 20190823
  2. FASLODEX [Concomitant]
     Active Substance: FULVESTRANT
     Dosage: UNK UNK, Q4W
     Route: 065
  3. CYCLOPHOSPHAMIDE. [Suspect]
     Active Substance: CYCLOPHOSPHAMIDE
     Indication: BREAST CANCER METASTATIC
     Dosage: 4 OT, CYCLIC (4X)
     Route: 065
  4. DOXORUBICIN [Suspect]
     Active Substance: DOXORUBICIN
     Indication: BREAST CANCER METASTATIC
     Dosage: 4 OT, CYCLIC (4X)
     Route: 065
  5. ZOLEDRONIC ACID [Suspect]
     Active Substance: ZOLEDRONIC ACID
     Indication: BREAST CANCER METASTATIC
     Dosage: UNK UNK, Q3MO (EVERY 3 MONTHS)
     Route: 065
     Dates: start: 20190823
  6. FASLODEX [Concomitant]
     Active Substance: FULVESTRANT
     Indication: PRODUCT USED FOR UNKNOWN INDICATION
     Dosage: 250 MG (2X), Q2W
     Route: 065
     Dates: start: 20190823

REACTIONS (13)
  - Metastases to bone [Unknown]
  - Lung opacity [Unknown]
  - Trigger finger [Unknown]
  - Therapeutic response decreased [Unknown]
  - Neuropathy peripheral [Unknown]
  - Lung disorder [Unknown]
  - Bone lesion [Unknown]
  - Breast disorder [Unknown]
  - Pulmonary mass [Unknown]
  - Breast calcifications [Unknown]
  - Hypokinesia [Unknown]
  - Neutropenia [Unknown]
  - Invasive breast carcinoma [Unknown]

NARRATIVE: CASE EVENT DATE: 20180524
